FAERS Safety Report 9280125 (Version 1)
Quarter: 2013Q2

REPORT INFORMATION
  Report Type: Spontaneous
  Country: US (occurrence: None)
  Receive Date: 20130507
  Receipt Date: 20130507
  Transmission Date: 20140414
  Serious: Yes (Disabling, Other)
  Sender: FDA-Public Use
  Company Number: None

PATIENT
  Age: 59 Year
  Sex: Female
  Weight: 56.7 kg

DRUGS (1)
  1. ESCITALOPRAM 10 MG [Suspect]
     Indication: DEPRESSION
     Dosage: 1
     Route: 048
     Dates: start: 20121226, end: 20130216

REACTIONS (3)
  - Product substitution issue [None]
  - Vaginal disorder [None]
  - Female sexual arousal disorder [None]
